FAERS Safety Report 8343129 (Version 2)
Quarter: 2013Q3

REPORT INFORMATION
  Report Type: Spontaneous
  Country: US (occurrence: US)
  Receive Date: 20120119
  Receipt Date: 20130718
  Transmission Date: 20140515
  Serious: No
  Sender: FDA-Public Use
  Company Number: US-B.I. PHARMACEUTICALS,INC./RIDGEFIELD-2012-BP-00927BP

PATIENT
  Age: 90 Year
  Sex: Female

DRUGS (8)
  1. PRADAXA [Suspect]
     Indication: ATRIAL FIBRILLATION
     Dosage: 300 MG
     Route: 048
     Dates: start: 201110
  2. DHA FISH OIL [Concomitant]
     Indication: PROPHYLAXIS
     Route: 048
  3. PROBIOTIC [Concomitant]
     Indication: PROPHYLAXIS
     Route: 048
  4. CALCIUM PLUS MAGNESIUM [Concomitant]
     Indication: PROPHYLAXIS
     Route: 048
  5. CENTRUM MULTIVITAMIN [Concomitant]
     Indication: PROPHYLAXIS
     Route: 048
  6. SYNTHROID [Concomitant]
     Indication: HYPOTHYROIDISM
     Route: 048
  7. ATENOLOL [Concomitant]
     Indication: HYPERTENSION
     Dosage: 25 MG
     Route: 048
  8. NIZORAL [Concomitant]
     Indication: FUNGAL INFECTION
     Route: 061
     Dates: start: 201108

REACTIONS (3)
  - Visual impairment [Not Recovered/Not Resolved]
  - Age-related macular degeneration [Not Recovered/Not Resolved]
  - Fatigue [Not Recovered/Not Resolved]
